FAERS Safety Report 6646514-5 (Version None)
Quarter: 2010Q1

REPORT INFORMATION
  Report Type: 
  Country: None (occurrence: None)
  Receive Date: 20100322
  Receipt Date: 20100322
  Transmission Date: 20100710
  Serious: No
  Sender: FDA-Public Use
  Company Number: None

PATIENT
  Sex: Female
  Weight: 59.4212 kg

DRUGS (1)
  1. SRONYX .1MG LEVONORGESTREL, .02MG ETHINYLESTRADIOL WATSON PHARMA [Suspect]
     Indication: CONTRACEPTION
     Dosage: 1 TABLET DAILY SAME TIME ORAL
     Route: 048
     Dates: start: 20091122, end: 20091201

REACTIONS (1)
  - PREGNANCY ON ORAL CONTRACEPTIVE [None]
